FAERS Safety Report 7564781-0 (Version None)
Quarter: 2011Q2

REPORT INFORMATION
  Report Type: 
  Country: None (occurrence: None)
  Receive Date: 20110622
  Receipt Date: 20101209
  Transmission Date: 20111010
  Serious: Yes (Death, Hospitalization)
  Sender: FDA-Public Use
  Company Number: US-MYLANLABS-2010S1021175

PATIENT
  Age: 72 Year
  Sex: Female

DRUGS (1)
  1. CLOZAPINE [Suspect]

REACTIONS (1)
  - CLOSTRIDIUM DIFFICILE COLITIS [None]
